FAERS Safety Report 24843107 (Version 1)
Quarter: 2025Q1

REPORT INFORMATION
  Report Type: Report from Study
  Country: US (occurrence: US)
  Receive Date: 20250115
  Receipt Date: 20250115
  Transmission Date: 20250408
  Serious: No
  Sender: HRA PHARMA
  Company Number: US-ORG100014127-2024000350

PATIENT
  Age: 66 Year
  Sex: Male

DRUGS (6)
  1. LYSODREN [Suspect]
     Active Substance: MITOTANE
     Indication: Adrenocortical carcinoma
     Dosage: 4 TABLETS WITH BREAKFAST, 3 TABLETS WITH LUNCH, 3 TABLETS WITH DINNER
     Route: 048
     Dates: start: 20240910
  2. LYSODREN [Suspect]
     Active Substance: MITOTANE
     Indication: Adrenocortical carcinoma
     Dosage: 4 TABLETS WITH BREAKFAST, 3 TABLETS WITH LUNCH, 3 TABLETS WITH DINNER
     Route: 048
  3. ROSUVASTATIN [Concomitant]
     Active Substance: ROSUVASTATIN
     Indication: Product used for unknown indication
  4. ONDANSETRON [Concomitant]
     Active Substance: ONDANSETRON
     Indication: Product used for unknown indication
  5. Advair diskus 100/50 mcg [Concomitant]
     Indication: Product used for unknown indication
  6. Albuterol HFA inhalation [Concomitant]
     Indication: Product used for unknown indication

REACTIONS (2)
  - Dry skin [Not Recovered/Not Resolved]
  - Fatigue [Not Recovered/Not Resolved]

NARRATIVE: CASE EVENT DATE: 20240910
